FAERS Safety Report 8572301-7 (Version None)
Quarter: 2012Q3

REPORT INFORMATION
  Report Type: 
  Country: None (occurrence: None)
  Receive Date: 20120806
  Receipt Date: 20120730
  Transmission Date: 20120928
  Serious: Yes (Other)
  Sender: FDA-Public Use
  Company Number: US-B.I. PHARMACEUTICALS,INC./RIDGEFIELD-2012-BP-13603BP

PATIENT
  Sex: Male
  Weight: 106 kg

DRUGS (5)
  1. TRADJENTA [Suspect]
     Indication: TYPE 2 DIABETES MELLITUS
     Dosage: 5 MG
     Route: 048
     Dates: start: 20111108, end: 20120523
  2. METOPROLOL TARTRATE [Concomitant]
     Indication: HYPERTENSION
     Dosage: 200 MG
     Route: 048
     Dates: start: 20111024
  3. AMLODIPINE [Concomitant]
     Indication: HYPERTENSION
     Dosage: 10 MG
     Route: 048
     Dates: start: 20111024
  4. LISINOPRIL [Concomitant]
     Indication: HYPERTENSION
     Route: 048
  5. FUROSEMIDE [Concomitant]
     Indication: OEDEMA
     Dosage: 80 MG
     Route: 048

REACTIONS (4)
  - PANCREATITIS [None]
  - ABDOMINAL PAIN UPPER [None]
  - NAUSEA [None]
  - VOMITING [None]
